FAERS Safety Report 21970344 (Version 1)
Quarter: 2023Q1

REPORT INFORMATION
  Report Type: Report from Study
  Country: US (occurrence: US)
  Receive Date: 20230209
  Receipt Date: 20230209
  Transmission Date: 20230418
  Serious: No
  Sender: FDA-Public Use
  Company Number: US-BEH-2022146991

PATIENT
  Age: 2 Year
  Sex: Male
  Weight: 13.2 kg

DRUGS (7)
  1. HIZENTRA [Suspect]
     Active Substance: HUMAN IMMUNOGLOBULIN G
     Indication: Primary immunodeficiency syndrome
     Dosage: 2 GRAM, QW
     Route: 058
     Dates: start: 20220623
  2. HIZENTRA [Suspect]
     Active Substance: HUMAN IMMUNOGLOBULIN G
     Indication: Hypogammaglobulinaemia
     Dosage: 2 GRAM, QW
     Route: 058
  3. HIZENTRA [Suspect]
     Active Substance: HUMAN IMMUNOGLOBULIN G
     Dosage: 2 GRAM, QW
     Route: 058
     Dates: start: 20220622
  4. HIZENTRA [Suspect]
     Active Substance: HUMAN IMMUNOGLOBULIN G
     Dosage: UNK
     Route: 058
     Dates: start: 20220806
  5. HIZENTRA [Suspect]
     Active Substance: HUMAN IMMUNOGLOBULIN G
     Dosage: UNK
     Route: 058
     Dates: start: 20220814
  6. HIZENTRA [Suspect]
     Active Substance: HUMAN IMMUNOGLOBULIN G
     Dosage: UNK
     Route: 058
     Dates: start: 20230111
  7. HIZENTRA [Suspect]
     Active Substance: HUMAN IMMUNOGLOBULIN G
     Dosage: UNK
     Route: 065

REACTIONS (28)
  - Injection site discharge [Recovered/Resolved]
  - Wrong technique in product usage process [Recovered/Resolved]
  - Injection site irritation [Not Recovered/Not Resolved]
  - Injection site erythema [Not Recovered/Not Resolved]
  - Infusion site erythema [Recovered/Resolved]
  - Infusion site rash [Recovered/Resolved]
  - Infusion site extravasation [Recovered/Resolved]
  - Wrong technique in product usage process [Recovered/Resolved]
  - Injection site irritation [Recovering/Resolving]
  - Injection site erythema [Recovering/Resolving]
  - Injection site vesicles [Recovered/Resolved]
  - Infusion site extravasation [Recovered/Resolved]
  - Wrong technique in product usage process [Recovered/Resolved]
  - Infusion site mass [Unknown]
  - Discomfort [Unknown]
  - Product preparation error [Unknown]
  - No adverse event [Unknown]
  - No adverse event [Unknown]
  - Insurance issue [Unknown]
  - Irritability [Recovered/Resolved]
  - Middle insomnia [Not Recovered/Not Resolved]
  - Screaming [Unknown]
  - Crying [Unknown]
  - T-lymphocyte count decreased [Unknown]
  - Infusion site swelling [Unknown]
  - No adverse event [Recovered/Resolved]
  - Product dose omission issue [Recovered/Resolved]
  - Irritability [Unknown]

NARRATIVE: CASE EVENT DATE: 20220622
